FAERS Safety Report 5032896-7 (Version None)
Quarter: 2006Q2

REPORT INFORMATION
  Report Type: 
  Country: None (occurrence: None)
  Receive Date: 20060622
  Receipt Date: 20060616
  Transmission Date: 20061013
  Serious: Yes (Other)
  Sender: FDA-Public Use
  Company Number: FR-AVENTIS-200612188FR

PATIENT
  Age: 30 Year
  Sex: Male

DRUGS (2)
  1. KETEK [Suspect]
     Indication: VIRAL INFECTION
     Route: 048
  2. DOLIPRANE [Suspect]

REACTIONS (4)
  - CHROMATURIA [None]
  - FATIGUE [None]
  - HEPATITIS [None]
  - JAUNDICE [None]
